FAERS Safety Report 4616695-3 (Version None)
Quarter: 2005Q2

REPORT INFORMATION
  Report Type: 
  Country: None (occurrence: None)
  Receive Date: 20050311
  Receipt Date: 20050210
  Transmission Date: 20051028
  Serious: No
  Sender: FDA-Public Use
  Company Number: 2005-00234

PATIENT
  Age: 66 Year
  Sex: Male
  Weight: 94.8 kg

DRUGS (3)
  1. VELCADE [Suspect]
     Indication: MULTIPLE MYELOMA
     Dosage: 2.50 MG, INTRAVENOUS BOLUS, INTRAVENOUS
     Route: 040
     Dates: start: 20050120
  2. OXYCONTIN [Concomitant]
  3. PROTONIX [Concomitant]

REACTIONS (2)
  - CHILLS [None]
  - PYREXIA [None]
